FAERS Safety Report 18857652 (Version 2)
Quarter: 2025Q3

REPORT INFORMATION
  Report Type: Spontaneous
  Country: GB (occurrence: GB)
  Receive Date: 20210208
  Receipt Date: 20250701
  Transmission Date: 20251021
  Serious: Yes (Hospitalization, Disabling, Other)
  Sender: LUPIN
  Company Number: GB-35507-2021-01135

PATIENT
  Age: 22 Year

DRUGS (26)
  1. LEVETIRACETAM [Suspect]
     Active Substance: LEVETIRACETAM
     Indication: Status epilepticus
     Route: 065
  2. PHENYTOIN SODIUM [Suspect]
     Active Substance: PHENYTOIN SODIUM
     Indication: Status epilepticus
     Route: 065
  3. TOPIRAMATE [Suspect]
     Active Substance: TOPIRAMATE
     Indication: Status epilepticus
     Route: 065
  4. PROPOFOL [Suspect]
     Active Substance: PROPOFOL
     Indication: Anaesthesia
     Route: 065
  5. PROPOFOL [Suspect]
     Active Substance: PROPOFOL
     Indication: Status epilepticus
  6. PROPOFOL [Suspect]
     Active Substance: PROPOFOL
     Indication: Sedation
  7. FENTANYL [Suspect]
     Active Substance: FENTANYL
     Indication: Anaesthesia
  8. FENTANYL [Suspect]
     Active Substance: FENTANYL
     Indication: Sedation
  9. THIOPENTAL SODIUM [Suspect]
     Active Substance: THIOPENTAL SODIUM
     Indication: Anaesthesia
  10. THIOPENTAL SODIUM [Suspect]
     Active Substance: THIOPENTAL SODIUM
     Indication: Status epilepticus
  11. KETAMINE [Suspect]
     Active Substance: KETAMINE
     Indication: Anaesthesia
     Route: 065
  12. KETAMINE [Suspect]
     Active Substance: KETAMINE
     Indication: Status epilepticus
  13. PHENOBARBITAL [Suspect]
     Active Substance: PHENOBARBITAL
     Indication: Status epilepticus
     Route: 065
  14. VALPROATE SODIUM [Suspect]
     Active Substance: VALPROATE SODIUM
     Indication: Status epilepticus
     Route: 065
  15. PERAMPANEL [Suspect]
     Active Substance: PERAMPANEL
     Indication: Status epilepticus
     Dosage: 14 MILLIGRAM, QD (SLOWLY UP-TITRATED)
     Route: 065
  16. CLONAZEPAM [Suspect]
     Active Substance: CLONAZEPAM
     Indication: Status epilepticus
     Route: 065
  17. MIDAZOLAM [Suspect]
     Active Substance: MIDAZOLAM
     Indication: Anaesthesia
     Route: 065
  18. LACOSAMIDE [Suspect]
     Active Substance: LACOSAMIDE
     Indication: Status epilepticus
     Route: 065
  19. REMIFENTANIL [Suspect]
     Active Substance: REMIFENTANIL
     Indication: Sedation
     Route: 065
  20. CEFTRIAXONE [Suspect]
     Active Substance: CEFTRIAXONE
     Indication: Evidence based treatment
  21. LORAZEPAM [Suspect]
     Active Substance: LORAZEPAM
     Indication: Paroxysmal sympathetic hyperactivity
     Route: 065
  22. ACYCLOVIR [Suspect]
     Active Substance: ACYCLOVIR
     Indication: Evidence based treatment
  23. METHYLPREDNISOLONE [Suspect]
     Active Substance: METHYLPREDNISOLONE
     Indication: Status epilepticus
     Dosage: 1 GRAM, QD, 1 GRAM, ONCE A DAY,TWO SEPARATE PULSES
  24. METHYLPREDNISOLONE [Suspect]
     Active Substance: METHYLPREDNISOLONE
     Dosage: 1 GRAM, QD, 1 GRAM, ONCE A DAY,TWO SEPARATE PULSES
  25. HUMAN IMMUNOGLOBULIN G [Concomitant]
     Active Substance: HUMAN IMMUNOGLOBULIN G
     Indication: Product used for unknown indication
     Dosage: 2 GRAM PER KILOGRAM, QD (ONCE A DAY)
  26. HUMAN PLASMA [Concomitant]
     Active Substance: HUMAN PLASMA
     Indication: Product used for unknown indication
     Route: 065

REACTIONS (18)
  - Infection [Unknown]
  - Decubitus ulcer [Unknown]
  - Pelvic venous thrombosis [Unknown]
  - Fungal infection [Unknown]
  - Thrombophlebitis [Unknown]
  - Weight decreased [Unknown]
  - Anaemia [Unknown]
  - Pyrexia [Unknown]
  - Tachycardia [Unknown]
  - Haematuria traumatic [Unknown]
  - Muscle contracture [Unknown]
  - Intensive care unit acquired weakness [Unknown]
  - Liver function test abnormal [Unknown]
  - Hypothyroidism [Unknown]
  - Cognitive disorder [Not Recovered/Not Resolved]
  - Intentional product use issue [Unknown]
  - Off label use [Unknown]
  - Product use in unapproved indication [Unknown]
